FAERS Safety Report 9701780 (Version 2)
Quarter: 2014Q1

REPORT INFORMATION
  Report Type: Spontaneous
  Country: DE (occurrence: DE)
  Receive Date: 20131121
  Receipt Date: 20140130
  Transmission Date: 20141002
  Serious: Yes (Other)
  Sender: FDA-Public Use
  Company Number: DE-TEVA-444342GER

PATIENT
  Sex: Female

DRUGS (2)
  1. COPAXONE [Suspect]
     Dates: end: 201304
  2. ANTIHYPERTENSIV MEDICATION [Concomitant]
     Indication: HYPERTENSION

REACTIONS (11)
  - Multiple sclerosis relapse [Recovering/Resolving]
  - Paraplegia [Recovering/Resolving]
  - Multiple sclerosis [Recovering/Resolving]
  - Loss of control of legs [Recovering/Resolving]
  - Gait disturbance [Recovering/Resolving]
  - Balance disorder [Recovering/Resolving]
  - Gait disturbance [Recovering/Resolving]
  - Gait disturbance [Recovering/Resolving]
  - Influenza [Unknown]
  - Fatigue [Unknown]
  - Malaise [Unknown]
